FAERS Safety Report 14348310 (Version 2)
Quarter: 2018Q1

REPORT INFORMATION
  Report Type: Report from Study
  Country: US (occurrence: US)
  Receive Date: 20180103
  Receipt Date: 20180207
  Transmission Date: 20180509
  Serious: Yes (Hospitalization)
  Sender: FDA-Public Use
  Company Number: US-ACTELION-A-NJ2017-158648

PATIENT
  Age: 80 Year
  Sex: Female
  Weight: 72.56 kg

DRUGS (16)
  1. LEXAPRO [Concomitant]
     Active Substance: ESCITALOPRAM OXALATE
     Dosage: 10 MG, UNK
  2. OXYGEN. [Concomitant]
     Active Substance: OXYGEN
     Dosage: UNK
  3. DAILY VITAMINS [Concomitant]
     Dosage: UNK
  4. AMLODIPINE [Concomitant]
     Active Substance: AMLODIPINE BESYLATE
  5. LASIX [Concomitant]
     Active Substance: FUROSEMIDE
     Dosage: 40 MG, QD
  6. LOSARTAN. [Concomitant]
     Active Substance: LOSARTAN
     Dosage: 25 MG, UNK
  7. SPIRIVA [Concomitant]
     Active Substance: TIOTROPIUM BROMIDE MONOHYDRATE
     Dosage: UNK
  8. OPSUMIT [Suspect]
     Active Substance: MACITENTAN
     Indication: PULMONARY HYPERTENSION
     Dosage: 10 MG, QD
     Route: 048
     Dates: start: 201707
  9. CELEBREX [Concomitant]
     Active Substance: CELECOXIB
     Dosage: 200 NG, UNK
  10. POTASSIUM [Concomitant]
     Active Substance: POTASSIUM
     Dosage: UNK
  11. LEVOTHYROXINE. [Concomitant]
     Active Substance: LEVOTHYROXINE
     Dosage: 50 MCG, UNK
  12. VESICARE [Concomitant]
     Active Substance: SOLIFENACIN SUCCINATE
     Dosage: 5 MG, UNK
  13. SYMBICORT [Concomitant]
     Active Substance: BUDESONIDE\FORMOTEROL FUMARATE DIHYDRATE
     Dosage: UNK
  14. OCUVITE [Concomitant]
     Active Substance: VITAMINS
     Dosage: UNK, QD
  15. VITAMIN D [Concomitant]
     Active Substance: CHOLECALCIFEROL
     Dosage: UNK, QD
  16. CRANBERRY. [Concomitant]
     Active Substance: CRANBERRY
     Dosage: UNK

REACTIONS (13)
  - Anaemia [Not Recovered/Not Resolved]
  - Red blood cell count decreased [Not Recovered/Not Resolved]
  - Transfusion [Unknown]
  - Urinary tract infection [Unknown]
  - Dyspnoea [Not Recovered/Not Resolved]
  - Oxygen saturation decreased [Not Recovered/Not Resolved]
  - Walking distance test abnormal [Not Recovered/Not Resolved]
  - Blood count abnormal [Recovered/Resolved]
  - Rhinorrhoea [Not Recovered/Not Resolved]
  - Malaise [Unknown]
  - Bedridden [Not Recovered/Not Resolved]
  - Asthenia [Not Recovered/Not Resolved]
  - Blood iron decreased [Recovered/Resolved]

NARRATIVE: CASE EVENT DATE: 201708
